FAERS Safety Report 8035540 (Version 11)
Quarter: 2013Q4

REPORT INFORMATION
  Report Type: Spontaneous
  Country: US (occurrence: US)
  Receive Date: 20110714
  Receipt Date: 20131118
  Transmission Date: 20140711
  Serious: Yes (Other)
  Sender: FDA-Public Use
  Company Number: US-BAYER-2011-060318

PATIENT
  Age: 69 Year
  Sex: Male

DRUGS (18)
  1. MAGNEVIST [Suspect]
     Indication: NUCLEAR MAGNETIC RESONANCE IMAGING SPINAL
  2. GADOLINIUM IN UNSPECIFIED DRUG [Suspect]
     Indication: ANGIOGRAM
     Dosage: UNK
     Dates: start: 20040413, end: 20040413
  3. GADOLINIUM IN UNSPECIFIED DRUG [Suspect]
     Indication: NUCLEAR MAGNETIC RESONANCE IMAGING ABDOMINAL
     Dosage: UNK
     Dates: start: 20040421, end: 20040421
  4. BAYER [Suspect]
     Indication: ANGIOGRAM
  5. OMNISCAN [Suspect]
     Indication: NUCLEAR MAGNETIC RESONANCE IMAGING ABDOMINAL
     Dosage: UNK
     Dates: start: 20040811
  6. EPOGEN [Concomitant]
     Indication: RED BLOOD CELL ABNORMALITY
     Dosage: UNK
     Dates: start: 2001
  7. NEPHROVITE [VIT C,VIT H,B5,B12,B9,B3,B6,B2,B1 HCL] [Concomitant]
     Indication: VITAMIN SUPPLEMENTATION
     Dosage: UNK
     Dates: start: 2001
  8. OXYCONTIN [Concomitant]
     Indication: PAIN
     Dosage: UNK
     Dates: start: 2001
  9. ISOSORBIDE [Concomitant]
     Indication: HYPERTENSION
     Dosage: UNK
     Dates: start: 2001
  10. MINOXIDIL [Concomitant]
     Indication: HYPERTENSION
     Dosage: UNK
     Dates: start: 2001
  11. CRESTOR [Concomitant]
     Indication: BLOOD CHOLESTEROL INCREASED
     Dosage: UNK
     Dates: start: 2001
  12. PHOSLO [Concomitant]
     Indication: BLOOD PHOSPHORUS INCREASED
  13. ALLOPURINOL [Concomitant]
     Indication: GOUT
  14. SENSIPAR [Concomitant]
     Indication: BLOOD CALCIUM INCREASED
  15. ZEMPLAR [Concomitant]
  16. FOLIC ACID [Concomitant]
     Dosage: 1 MG, QD
     Route: 048
  17. DOXAZOSIN [Concomitant]
     Dosage: 8 MG, QD
     Route: 048
  18. CONTRAST MEDIA [Concomitant]
     Indication: ANGIOGRAM
     Dosage: UNK
     Dates: start: 20110927, end: 20110927

REACTIONS (25)
  - Nephrogenic systemic fibrosis [Not Recovered/Not Resolved]
  - Injury [Not Recovered/Not Resolved]
  - Skin discolouration [Not Recovered/Not Resolved]
  - Pain in extremity [Not Recovered/Not Resolved]
  - Muscular weakness [Not Recovered/Not Resolved]
  - Abasia [Not Recovered/Not Resolved]
  - Hand deformity [Not Recovered/Not Resolved]
  - Muscle tightness [Not Recovered/Not Resolved]
  - Mobility decreased [Not Recovered/Not Resolved]
  - Nodule [Not Recovered/Not Resolved]
  - Dry skin [Not Recovered/Not Resolved]
  - Skin exfoliation [Not Recovered/Not Resolved]
  - Oedema peripheral [Not Recovered/Not Resolved]
  - Skin plaque [Not Recovered/Not Resolved]
  - Skin mass [Not Recovered/Not Resolved]
  - Skin fissures [Not Recovered/Not Resolved]
  - Skin hyperpigmentation [Not Recovered/Not Resolved]
  - Skin fibrosis [Not Recovered/Not Resolved]
  - Skin tightness [Not Recovered/Not Resolved]
  - Gait disturbance [Not Recovered/Not Resolved]
  - Musculoskeletal stiffness [Not Recovered/Not Resolved]
  - Joint contracture [Not Recovered/Not Resolved]
  - Arthralgia [Not Recovered/Not Resolved]
  - Arteriovenous fistula [Not Recovered/Not Resolved]
  - Skin induration [Not Recovered/Not Resolved]
